FAERS Safety Report 24315273 (Version 4)
Quarter: 2025Q3

REPORT INFORMATION
  Report Type: Spontaneous
  Country: US (occurrence: US)
  Receive Date: 20240913
  Receipt Date: 20250810
  Transmission Date: 20251020
  Serious: No
  Sender: ALEXION PHARMACEUTICALS
  Company Number: 2024A204861

PATIENT
  Sex: Female

DRUGS (2)
  1. BREZTRI [Suspect]
     Active Substance: BUDESONIDE\FORMOTEROL\GLYCOPYRROLATE
  2. NUCALA [Concomitant]
     Active Substance: MEPOLIZUMAB

REACTIONS (9)
  - Asthma [Unknown]
  - Illness [Unknown]
  - Respiratory disorder [Unknown]
  - Confusional state [Unknown]
  - Aphonia [Unknown]
  - Multiple allergies [Unknown]
  - Product use issue [Unknown]
  - Product dose omission issue [Unknown]
  - Product packaging issue [Unknown]
